FAERS Safety Report 7811963-6 (Version None)
Quarter: 2011Q4

REPORT INFORMATION
  Report Type: 
  Country: None (occurrence: None)
  Receive Date: 20111013
  Receipt Date: 20110929
  Transmission Date: 20120403
  Serious: Yes (Hospitalization, Other)
  Sender: FDA-Public Use
  Company Number: PHHY2011JP72093

PATIENT
  Sex: Female

DRUGS (3)
  1. DIOVAN HCT [Suspect]
     Indication: HYPERTENSION
     Dosage: 1 DF, QD
     Route: 048
     Dates: start: 20090725, end: 20091219
  2. LIPITOR [Concomitant]
     Dosage: 10 MG, UNK
     Route: 048
  3. ARICEPT [Concomitant]
     Dosage: 5 MG
     Route: 048

REACTIONS (8)
  - LOSS OF CONSCIOUSNESS [None]
  - MALAISE [None]
  - HYPONATRAEMIA [None]
  - HYPERHIDROSIS [None]
  - DYSPNOEA [None]
  - BLOOD GLUCOSE INCREASED [None]
  - BLOOD PRESSURE DECREASED [None]
  - HYPOCHLORAEMIA [None]
